FAERS Safety Report 10012811 (Version 1)
Quarter: 2014Q1

REPORT INFORMATION
  Report Type: Spontaneous
  Country: IT (occurrence: IT)
  Receive Date: 20140314
  Receipt Date: 20140314
  Transmission Date: 20141002
  Serious: Yes (Other)
  Sender: FDA-Public Use
  Company Number: PHHY2014IT029994

PATIENT
  Age: 35 Year
  Sex: Female

DRUGS (6)
  1. ACZ885 [Suspect]
     Indication: TUMOUR NECROSIS FACTOR RECEPTOR-ASSOCIATED PERIODIC SYNDROME
     Dosage: 150 MG, EVERY 8 WEEKS
     Route: 058
     Dates: start: 201106
  2. ACZ885 [Suspect]
     Indication: OFF LABEL USE
     Dosage: 150 MG, EVERY 4 WEEKS
     Route: 058
  3. ALENDRONIC ACID [Suspect]
     Indication: OSTEOPOROSIS
     Dosage: 70 MG, PER WEEK
  4. PREDNISONE [Concomitant]
     Dosage: 50 MG, PER DAY
  5. ETANERCEPT [Concomitant]
     Indication: TUMOUR NECROSIS FACTOR RECEPTOR-ASSOCIATED PERIODIC SYNDROME
     Dosage: 50 MG, PER WEEK
     Route: 058
  6. ANAKINRA [Concomitant]
     Indication: TUMOUR NECROSIS FACTOR RECEPTOR-ASSOCIATED PERIODIC SYNDROME
     Dosage: 100 MG, PER DAY
     Route: 058

REACTIONS (9)
  - Tumour necrosis factor receptor-associated periodic syndrome [Unknown]
  - Pyrexia [Unknown]
  - Abdominal pain [Not Recovered/Not Resolved]
  - Inflammatory marker increased [Unknown]
  - Myalgia [Unknown]
  - Abdominal discomfort [Unknown]
  - Condition aggravated [Unknown]
  - Gastrointestinal disorder [Unknown]
  - Drug ineffective [Unknown]
